FAERS Safety Report 21312973 (Version 2)
Quarter: 2022Q4

REPORT INFORMATION
  Report Type: Spontaneous
  Country: US (occurrence: US)
  Receive Date: 20220909
  Receipt Date: 20221004
  Transmission Date: 20230113
  Serious: No
  Sender: FDA-Public Use
  Company Number: US-BAUSCHBL-2022BNL000049

PATIENT
  Age: 70 Year
  Sex: Female

DRUGS (1)
  1. ZYLET [Suspect]
     Active Substance: LOTEPREDNOL ETABONATE\TOBRAMYCIN
     Indication: Hypersensitivity
     Route: 047

REACTIONS (5)
  - Instillation site pruritus [Unknown]
  - Instillation site lacrimation [Unknown]
  - Product dose omission issue [Unknown]
  - Product supply issue [Unknown]
  - Product availability issue [Unknown]
